FAERS Safety Report 13570666 (Version 2)
Quarter: 2017Q3

REPORT INFORMATION
  Report Type: Other
  Country: GB (occurrence: GB)
  Receive Date: 20170523
  Receipt Date: 20170726
  Transmission Date: 20171127
  Serious: Yes (Disabling)
  Sender: FDA-Public Use
  Company Number: GB-GLENMARK PHARMACEUTICALS-2017GMK027539

PATIENT

DRUGS (1)
  1. LINEZOLID. [Suspect]
     Active Substance: LINEZOLID
     Indication: BLOOD CULTURE POSITIVE
     Dosage: 600 MG, UNK
     Route: 048
     Dates: start: 201608, end: 201608

REACTIONS (1)
  - Vestibular disorder [Not Recovered/Not Resolved]
